FAERS Safety Report 5403793-X (Version None)
Quarter: 2007Q3

REPORT INFORMATION
  Report Type: 
  Country: None (occurrence: None)
  Receive Date: 20070731
  Receipt Date: 20070731
  Transmission Date: 20080115
  Serious: No
  Sender: FDA-Public Use
  Company Number: None

PATIENT
  Age: 43 Year
  Sex: Male
  Weight: 88.4514 kg

DRUGS (2)
  1. PRILOSE OTC  20MG   PRODUCT OF SWEDEN / DIST. BY  PROCTOR + GAM [Suspect]
     Indication: DYSPEPSIA
     Dosage: 1 PILL  1 X DAY
     Dates: start: 20070621, end: 20070704
  2. PRILOSE OTC  20MG   PRODUCT OF SWEDEN / DIST. BY  PROCTOR + GAM [Suspect]
     Indication: GASTROOESOPHAGEAL REFLUX DISEASE
     Dosage: 1 PILL  1 X DAY
     Dates: start: 20070621, end: 20070704

REACTIONS (5)
  - DIZZINESS [None]
  - DRY MOUTH [None]
  - HYPERTENSION [None]
  - NAUSEA [None]
  - VERTIGO [None]
